FAERS Safety Report 5139565-3 (Version None)
Quarter: 2006Q4

REPORT INFORMATION
  Report Type: 
  Country: None (occurrence: None)
  Receive Date: 20061024
  Receipt Date: 20061011
  Transmission Date: 20070319
  Serious: Yes (Other)
  Sender: FDA-Public Use
  Company Number: 2006125851

PATIENT
  Age: 42 Year
  Sex: Female

DRUGS (3)
  1. EXUBERA [Suspect]
     Indication: DIABETES MELLITUS INSULIN-DEPENDENT
     Dosage: APPROX. 33 IU (3 IN 1 D), ORAL
     Route: 048
     Dates: start: 20060518, end: 20060101
  2. LANTUS [Concomitant]
  3. IRBESARTAN [Concomitant]

REACTIONS (4)
  - DEVICE MALFUNCTION [None]
  - DRUG INEFFECTIVE [None]
  - DRUG SPECIFIC ANTIBODY PRESENT [None]
  - HYPERGLYCAEMIA [None]
